FAERS Safety Report 7755561 (Version 3)
Quarter: 2013Q1

REPORT INFORMATION
  Report Type: Spontaneous
  Country: US (occurrence: US)
  Receive Date: 20110111
  Receipt Date: 20130325
  Transmission Date: 20140127
  Serious: Yes (Hospitalization, Other)
  Sender: FDA-Public Use
  Company Number: US-ROCHE-730897

PATIENT
  Sex: Female
  Weight: 54.4 kg

DRUGS (2)
  1. ACCUTANE [Suspect]
     Indication: ACNE
     Route: 065
  2. ACCUTANE [Suspect]
     Route: 065
     Dates: start: 20001122, end: 200101

REACTIONS (5)
  - Crohn^s disease [Unknown]
  - Inflammatory bowel disease [Unknown]
  - Depression [Unknown]
  - Ankylosing spondylitis [Unknown]
  - Oral herpes [Unknown]
